FAERS Safety Report 4274877-7 (Version None)
Quarter: 2004Q1

REPORT INFORMATION
  Report Type: 
  Country: None (occurrence: None)
  Receive Date: 20040116
  Receipt Date: 20040106
  Transmission Date: 20041129
  Serious: Yes (Hospitalization)
  Sender: FDA-Public Use
  Company Number: MK200401-0086-1

PATIENT
  Age: 55 Year
  Sex: Male

DRUGS (1)
  1. TOFRANIL [Suspect]
     Indication: OVERDOSE
     Dosage: 1200MG, ONE TIME
     Dates: start: 20031222, end: 20031222

REACTIONS (6)
  - ARRHYTHMIA [None]
  - ATRIOVENTRICULAR BLOCK FIRST DEGREE [None]
  - ELECTROCARDIOGRAM QT PROLONGED [None]
  - OVERDOSE [None]
  - RESPIRATORY RATE DECREASED [None]
  - TACHYCARDIA [None]
